FAERS Safety Report 6124218-5 (Version None)
Quarter: 2009Q1

REPORT INFORMATION
  Report Type: 
  Country: None (occurrence: None)
  Receive Date: 20090317
  Receipt Date: 20090305
  Transmission Date: 20090719
  Serious: Yes (Other)
  Sender: FDA-Public Use
  Company Number: PAR_02877_2009

PATIENT
  Age: 43 Year
  Sex: Female
  Weight: 65.4 kg

DRUGS (12)
  1. TORSEMIDE [Suspect]
     Indication: DIURETIC THERAPY
     Dosage: 60 MG, [40 MG EVERY MORNING AND 20 MG EVER EVENING])
  2. WARFARIN SODIUM [Suspect]
     Indication: ATRIAL FIBRILLATION
     Dosage: 7.5 MG, DAILY (52.5 MG PER WEEK)
  3. WARFARIN SODIUM [Suspect]
     Indication: ATRIAL FIBRILLATION
     Dosage: SEE IMAGE
  4. DIGOXIN [Concomitant]
  5. CARVEDILOL [Concomitant]
  6. SPIRONOLACTONE [Concomitant]
  7. FUROSEMIDE [Concomitant]
  8. LISINOPRIL [Concomitant]
  9. ASPIRIN [Concomitant]
  10. LEVOTHYROXINE SODIUM [Concomitant]
  11. ASCORBIC ACID [Concomitant]
  12. FERROUS SULFATE TAB [Concomitant]

REACTIONS (4)
  - ABDOMINAL DISTENSION [None]
  - DRUG INTERACTION [None]
  - INTERNATIONAL NORMALISED RATIO INCREASED [None]
  - STRESS [None]
